FAERS Safety Report 24731347 (Version 2)
Quarter: 2024Q4

REPORT INFORMATION
  Report Type: Spontaneous
  Country: US (occurrence: US)
  Receive Date: 20241213
  Receipt Date: 20241220
  Transmission Date: 20250114
  Serious: Yes (Other)
  Sender: SANOFI AVENTIS
  Company Number: US-SA-2024SA367798

PATIENT
  Age: 60 Year
  Sex: Male

DRUGS (3)
  1. KEVZARA [Suspect]
     Active Substance: SARILUMAB
     Indication: Rheumatoid arthritis
     Dosage: 200 MG, QOW
     Route: 058
     Dates: start: 202411, end: 2024
  2. KEVZARA [Suspect]
     Active Substance: SARILUMAB
     Indication: Arthralgia
  3. KEVZARA [Suspect]
     Active Substance: SARILUMAB
     Indication: Pain in extremity

REACTIONS (9)
  - Syncope [Unknown]
  - Rheumatoid arthritis [Unknown]
  - Pneumonia [Unknown]
  - Dizziness [Unknown]
  - Rheumatoid nodule [Unknown]
  - Arthralgia [Unknown]
  - Joint swelling [Unknown]
  - Cellulitis [Unknown]
  - Product use in unapproved indication [Unknown]

NARRATIVE: CASE EVENT DATE: 20240101
